FAERS Safety Report 8760811 (Version 1)
Quarter: 2012Q4

REPORT INFORMATION
  Report Type: 
  Country: US (occurrence: US)
  Receive Date: 20120830
  Receipt Date: 20120830
  Transmission Date: 20130627
  Serious: No
  Sender: FDA-Public Use
  Company Number: US-BAYER-2012-089338

PATIENT
  Sex: Female

DRUGS (11)
  1. BETASERON [Suspect]
     Dosage: 0.25 mg, QOD
     Route: 058
  2. ZYRTEC [Concomitant]
     Dosage: 10 mg, UNK
  3. DIOVAN [Concomitant]
     Dosage: 40 mg, UNK
  4. GABAPENTIN [Concomitant]
     Dosage: 100 mg, UNK
  5. SIMVASTATIN [Concomitant]
     Dosage: 20 mg, UNK
  6. BACLOFEN [Concomitant]
     Dosage: 10 mg, UNK
  7. AMITRIPTYLIN [Concomitant]
     Dosage: 150 mg, UNK
  8. ESTROPIPATE [Concomitant]
     Dosage: 0.75 mg, UNK
  9. LOSARTAN POTASSIUM [Concomitant]
     Dosage: 25 mg, UNK
  10. ACETYLSALICYLIC ACID (} 100 MG) [Concomitant]
     Dosage: 325 mg, UNK
  11. TRAMADOL HYDROCHLORIDE [Concomitant]
     Dosage: 200 mg, UNK

REACTIONS (5)
  - Amnesia [None]
  - Musculoskeletal stiffness [None]
  - Muscle tightness [None]
  - Fatigue [None]
  - General symptom [None]
